FAERS Safety Report 7164131-8 (Version None)
Quarter: 2010Q4

REPORT INFORMATION
  Report Type: 
  Country: None (occurrence: None)
  Receive Date: 20101123
  Receipt Date: 20100802
  Transmission Date: 20110411
  Serious: Yes (Hospitalization)
  Sender: FDA-Public Use
  Company Number: 00000283

PATIENT
  Age: 40 Year
  Sex: Female

DRUGS (5)
  1. LAMOTRIGINE [Suspect]
     Indication: EPILEPSY
  2. PHENOBARBITONE [Concomitant]
  3. LEVETIRACETAM [Concomitant]
  4. THYROID MEDICATION [Concomitant]
  5. LORAZEPAM [Concomitant]

REACTIONS (23)
  - ABDOMINAL PAIN [None]
  - CONDITION AGGRAVATED [None]
  - COORDINATION ABNORMAL [None]
  - DEPRESSION [None]
  - DIPLOPIA [None]
  - DISEASE RECURRENCE [None]
  - DIZZINESS [None]
  - DYSGEUSIA [None]
  - ERYTHEMA [None]
  - FATIGUE [None]
  - FEAR [None]
  - FLUID INTAKE REDUCED [None]
  - FOOD AVERSION [None]
  - HYPOPHAGIA [None]
  - INCREASED TENDENCY TO BRUISE [None]
  - INSOMNIA [None]
  - MUSCLE SPASMS [None]
  - OCULAR HYPERAEMIA [None]
  - SPEECH DISORDER [None]
  - STATUS EPILEPTICUS [None]
  - SUICIDAL IDEATION [None]
  - VERTIGO [None]
  - VOMITING [None]
